FAERS Safety Report 7565709-X (Version None)
Quarter: 2011Q2

REPORT INFORMATION
  Report Type: 
  Country: None (occurrence: None)
  Receive Date: 20110623
  Receipt Date: 20100618
  Transmission Date: 20111010
  Serious: No
  Sender: FDA-Public Use
  Company Number: US-MUTUAL PHARMACEUTICAL COMPANY, INC.-1-23127752

PATIENT
  Sex: Female

DRUGS (2)
  1. UNK [Concomitant]
  2. METOCLOPRAMIDE [Suspect]
     Indication: NAUSEA
     Route: 065
     Dates: start: 20011201

REACTIONS (6)
  - DYSARTHRIA [None]
  - EMOTIONAL DISORDER [None]
  - EXTRAPYRAMIDAL DISORDER [None]
  - INCORRECT DRUG ADMINISTRATION DURATION [None]
  - DYSKINESIA [None]
  - MUSCLE TWITCHING [None]
